FAERS Safety Report 9424534 (Version 1)
Quarter: 2013Q3

REPORT INFORMATION
  Report Type: Spontaneous
  Country: US (occurrence: None)
  Receive Date: 20130726
  Receipt Date: 20130726
  Transmission Date: 20140515
  Serious: Yes (Hospitalization)
  Sender: FDA-Public Use
  Company Number: None

PATIENT
  Age: 77 Year
  Sex: Male
  Weight: 63.5 kg

DRUGS (1)
  1. APOKYN [Suspect]
     Indication: PARKINSON^S DISEASE
     Dosage: 0.2(2MG) UP TO 5 TIMES A DAY SQ
     Route: 058
     Dates: start: 20130309

REACTIONS (2)
  - Syncope [None]
  - Hypotension [None]
